FAERS Safety Report 6040697-6 (Version None)
Quarter: 2009Q1

REPORT INFORMATION
  Report Type: 
  Country: None (occurrence: None)
  Receive Date: 20090116
  Receipt Date: 20080507
  Transmission Date: 20090719
  Serious: No
  Sender: FDA-Public Use
  Company Number: US-BRISTOL-MYERS SQUIBB COMPANY-14182265

PATIENT

DRUGS (3)
  1. ABILIFY [Suspect]
  2. ZYPREXA [Suspect]
  3. DEPAKOTE [Suspect]

REACTIONS (1)
  - OEDEMA PERIPHERAL [None]
